FAERS Safety Report 9183917 (Version 1)
Quarter: 2012Q4

REPORT INFORMATION
  Report Type: 
  Country: FR (occurrence: FR)
  Receive Date: 20121101
  Receipt Date: 20121101
  Transmission Date: 20130627
  Serious: Yes (Other)
  Sender: FDA-Public Use
  Company Number: FR-PFIZER INC-2012267714

PATIENT
  Age: 65 Year
  Sex: Female

DRUGS (1)
  1. RELPAX [Suspect]
     Dosage: 40 mg, UNK

REACTIONS (2)
  - Hepatic steatosis [Unknown]
  - Hepatic cyst [Unknown]
